FAERS Safety Report 16151504 (Version 2)
Quarter: 2019Q4

REPORT INFORMATION
  Report Type: Spontaneous
  Country: FR (occurrence: FR)
  Receive Date: 20190403
  Receipt Date: 20191016
  Transmission Date: 20200122
  Serious: Yes (Hospitalization)
  Sender: FDA-Public Use
  Company Number: FR-SUN PHARMACEUTICAL INDUSTRIES LTD-2019RR-204020

PATIENT
  Age: 83 Year
  Sex: Female

DRUGS (1)
  1. GABAPENTINE [Suspect]
     Active Substance: GABAPENTIN
     Indication: NEURALGIA
     Dosage: 1.2 GRAM, DAILY
     Route: 048
     Dates: start: 201812, end: 20190109

REACTIONS (3)
  - Vomiting [Recovered/Resolved]
  - Diarrhoea [Recovered/Resolved]
  - Nausea [Recovered/Resolved]

NARRATIVE: CASE EVENT DATE: 201812
